FAERS Safety Report 8927210 (Version 5)
Quarter: 2013Q2

REPORT INFORMATION
  Report Type: Report from Study
  Country: US (occurrence: US)
  Receive Date: 20121127
  Receipt Date: 20130624
  Transmission Date: 20140414
  Serious: Yes (Life-Threatening, Hospitalization)
  Sender: FDA-Public Use
  Company Number: US-ROCHE-1159099

PATIENT
  Age: 43 Year
  Sex: Female
  Weight: 134.1 kg

DRUGS (25)
  1. OSELTAMIVIR [Suspect]
     Indication: INFLUENZA
     Dosage: BLINDED TO DOSE
     Route: 048
     Dates: start: 20121108, end: 20121117
  2. PROTONIX [Concomitant]
     Route: 065
  3. VENTOLIN [Concomitant]
     Route: 065
     Dates: end: 20121128
  4. ATROVENT [Concomitant]
     Route: 065
     Dates: start: 20121031, end: 20121128
  5. FLONASE [Concomitant]
     Route: 065
  6. FEOSOL [Concomitant]
     Route: 065
  7. PREDNISONE [Concomitant]
     Route: 065
  8. ALLEGRA [Concomitant]
     Route: 065
  9. COREG [Concomitant]
     Route: 065
  10. BENADRYL [Concomitant]
     Route: 065
  11. COZAAR [Concomitant]
     Route: 048
  12. LYRICA [Concomitant]
     Route: 065
  13. SYMBICORT [Concomitant]
     Dosage: REPORTED AS 160/4.5
     Route: 065
  14. MILK OF MAGNESIA [Concomitant]
     Route: 065
     Dates: start: 20121031
  15. ASA [Concomitant]
     Route: 065
  16. SENOKOT-S [Concomitant]
     Route: 065
  17. POLYETHYLENE GLYCOL [Concomitant]
     Route: 065
  18. DULCOLAX (BISACODYL) [Concomitant]
     Route: 065
  19. TYLENOL [Concomitant]
     Route: 065
  20. NOVOLOG [Concomitant]
     Dosage: 40 UNITS AT BREAKFAST, 18 UNITS AT DINNER, REPORTED AS ^FLEXPEN^
     Route: 065
     Dates: start: 20121031
  21. LIDOCAINE [Concomitant]
     Route: 062
     Dates: start: 20121031
  22. TRAMADOL [Concomitant]
     Route: 065
     Dates: start: 20121031
  23. ZOFRAN [Concomitant]
     Route: 065
     Dates: start: 20121031
  24. MYCOSTATIN [Concomitant]
     Route: 065
     Dates: start: 20121110
  25. SALINE NASAL SPRAY [Concomitant]
     Route: 065
     Dates: start: 20121110

REACTIONS (2)
  - Renal failure [Recovering/Resolving]
  - Sepsis [Not Recovered/Not Resolved]
